FAERS Safety Report 5774211-7 (Version None)
Quarter: 2008Q2

REPORT INFORMATION
  Report Type: 
  Country: None (occurrence: None)
  Receive Date: 20080616
  Receipt Date: 20080604
  Transmission Date: 20081010
  Serious: Yes (Hospitalization)
  Sender: FDA-Public Use
  Company Number: JP-ROCHE-569182

PATIENT
  Age: 70 Year
  Sex: Female

DRUGS (2)
  1. TAMIFLU [Suspect]
     Route: 065
     Dates: start: 20080101
  2. ANTIDIABETIC DRUG NOS [Concomitant]

REACTIONS (3)
  - HYPOGLYCAEMIA [None]
  - NAUSEA [None]
  - RENAL IMPAIRMENT [None]
